FAERS Safety Report 15449198 (Version 2)
Quarter: 2019Q1

REPORT INFORMATION
  Report Type: Report from Study
  Country: US (occurrence: US)
  Receive Date: 20180930
  Receipt Date: 20190328
  Transmission Date: 20190417
  Serious: No
  Sender: FDA-Public Use
  Company Number: PHEH2018US040293

PATIENT
  Sex: Female

DRUGS (1)
  1. GILENYA [Suspect]
     Active Substance: FINGOLIMOD HYDROCHLORIDE
     Indication: MULTIPLE SCLEROSIS
     Dosage: 0.5 MG, QD
     Route: 048
     Dates: start: 20180224

REACTIONS (6)
  - White blood cell count decreased [Unknown]
  - Oropharyngeal pain [Unknown]
  - Lymphocyte count decreased [Unknown]
  - Nausea [Unknown]
  - Back pain [Unknown]
  - Nasopharyngitis [Unknown]
